FAERS Safety Report 9341087 (Version 1)
Quarter: 2013Q2

REPORT INFORMATION
  Report Type: Spontaneous
  Country: US (occurrence: US)
  Receive Date: 20130610
  Receipt Date: 20130610
  Transmission Date: 20140414
  Serious: Yes (Hospitalization)
  Sender: FDA-Public Use
  Company Number: US-ASTRAZENECA-2013SE39894

PATIENT
  Sex: Female
  Weight: 69.9 kg

DRUGS (3)
  1. SEROQUEL [Suspect]
     Route: 048
  2. SEROQUEL [Suspect]
     Route: 048
  3. GEODON [Concomitant]

REACTIONS (6)
  - Angina pectoris [Unknown]
  - Dyspnoea [Unknown]
  - Rheumatoid arthritis [Unknown]
  - Parkinson^s disease [Unknown]
  - Mood swings [Unknown]
  - Weight increased [Unknown]
